FAERS Safety Report 8540805 (Version 4)
Quarter: 2013Q4

REPORT INFORMATION
  Report Type: Spontaneous
  Country: IT (occurrence: DE)
  Receive Date: 20120502
  Receipt Date: 20131210
  Transmission Date: 20140711
  Serious: Yes (Hospitalization)
  Sender: FDA-Public Use
  Company Number: DE-FRI-1000030167

PATIENT
  Age: 63 Year
  Sex: Male

DRUGS (5)
  1. NEBIVOLOL [Suspect]
     Indication: HYPERTENSION
     Dosage: 2.5 MG
     Route: 048
     Dates: start: 2008, end: 201206
  2. NEBIVOLOL [Suspect]
     Dosage: 5 MG
     Route: 048
     Dates: start: 201206
  3. RAMIPRIL [Suspect]
     Indication: HYPERTENSION
     Dosage: 10 MG
     Dates: start: 2008, end: 20120529
  4. ACETYLSALICYLIC ACID [Concomitant]
     Indication: THROMBOSIS PROPHYLAXIS
     Dosage: 100 MG
     Dates: start: 2008
  5. SIMVASTATIN [Concomitant]
     Indication: HYPERCHOLESTEROLAEMIA
     Dosage: 20 MG
     Dates: start: 2008

REACTIONS (3)
  - Dizziness [Recovered/Resolved]
  - Cyanosis [Recovering/Resolving]
  - Dysphagia [Recovered/Resolved]
